FAERS Safety Report 8416057-7 (Version None)
Quarter: 2012Q2

REPORT INFORMATION
  Report Type: 
  Country: None (occurrence: None)
  Receive Date: 20120606
  Receipt Date: 20120528
  Transmission Date: 20120825
  Serious: Yes (Hospitalization)
  Sender: FDA-Public Use
  Company Number: DE-ROCHE-1067696

PATIENT
  Age: 59 Year
  Sex: Male

DRUGS (10)
  1. RAMIPRIL [Concomitant]
     Route: 048
     Dates: start: 20071221
  2. TORSEMIDE [Suspect]
     Indication: PRODUCT USED FOR UNKNOWN INDICATION
     Route: 048
     Dates: start: 20071107
  3. SPIRONOLACTONE [Concomitant]
     Route: 048
  4. ASPIRIN [Concomitant]
     Route: 048
  5. BISOPROLOL FUMARATE [Concomitant]
     Route: 048
     Dates: start: 20071227
  6. HYDROCHLOROTHIAZIDE [Concomitant]
     Route: 048
     Dates: start: 20071221
  7. EPLERENONE [Suspect]
     Indication: CARDIAC FAILURE
     Dosage: BLINDED
     Route: 048
     Dates: start: 20071213, end: 20080218
  8. TORSEMIDE [Suspect]
     Route: 048
     Dates: start: 20100430
  9. PANTOPRAZOLE [Concomitant]
     Route: 048
     Dates: start: 20071224
  10. DIGITOXIN TAB [Concomitant]
     Route: 048
     Dates: start: 20100125

REACTIONS (1)
  - HYPONATRAEMIA [None]
